FAERS Safety Report 5917908-8 (Version None)
Quarter: 2008Q4

REPORT INFORMATION
  Report Type: 
  Country: None (occurrence: None)
  Receive Date: 20081014
  Receipt Date: 20081010
  Transmission Date: 20090506
  Serious: Yes (Hospitalization)
  Sender: FDA-Public Use
  Company Number: ID-ABBOTT-08P-079-0481307-00

PATIENT
  Age: 2 Year
  Sex: Male

DRUGS (2)
  1. ABBOTIC GRANULE [Suspect]
     Indication: PNEUMONIA
     Route: 048
     Dates: start: 20081007, end: 20081009
  2. VENTOLIN POWDER [Concomitant]
     Indication: PNEUMONIA
     Route: 048
     Dates: start: 20081009

REACTIONS (4)
  - DEHYDRATION [None]
  - DIARRHOEA [None]
  - FLATULENCE [None]
  - VOMITING [None]
